FAERS Safety Report 8017132-1 (Version None)
Quarter: 2012Q1

REPORT INFORMATION
  Report Type: 
  Country: None (occurrence: None)
  Receive Date: 20120102
  Receipt Date: 20111222
  Transmission Date: 20120608
  Serious: Yes (Death)
  Sender: FDA-Public Use
  Company Number: IE-ROCHE-1003886

PATIENT
  Sex: Male

DRUGS (18)
  1. GLUCOPHAGE [Concomitant]
  2. COMBIVENT [Concomitant]
  3. MORPHINE [Concomitant]
  4. SPIRIVA [Concomitant]
  5. TOBRAMYCIN AEROSOL [Concomitant]
  6. RANIBIZUMAB [Suspect]
     Indication: AGE-RELATED MACULAR DEGENERATION
     Route: 050
     Dates: start: 20091013, end: 20091110
  7. DEXAMETHASONE [Concomitant]
  8. LIPITOR [Concomitant]
  9. OCUVITE LUTEIN [Concomitant]
  10. AZITHROMYCIN [Concomitant]
  11. RANIBIZUMAB [Suspect]
     Route: 050
     Dates: start: 20091110
  12. LERCANIDIPINE [Concomitant]
  13. ACETAMINOPHEN [Concomitant]
  14. MILPAR [Concomitant]
  15. FLUTICASONE PROPIONATE/SALMETEROL [Concomitant]
  16. ASPIRIN [Concomitant]
  17. LANSOPRAZOLE [Concomitant]
  18. COLISTIN [Concomitant]

REACTIONS (2)
  - GASTROINTESTINAL CANCER METASTATIC [None]
  - INTESTINAL ADENOCARCINOMA [None]
